FAERS Safety Report 15100017 (Version 1)
Quarter: 2018Q3

REPORT INFORMATION
  Report Type: Report from Study
  Country: CN (occurrence: CN)
  Receive Date: 20180703
  Receipt Date: 20180703
  Transmission Date: 20181010
  Serious: Yes (Other)
  Sender: FDA-Public Use
  Company Number: CN-ROCHE-2146123

PATIENT

DRUGS (2)
  1. GEMCITABINE [Suspect]
     Active Substance: GEMCITABINE\GEMCITABINE HYDROCHLORIDE
     Indication: ADENOCARCINOMA OF THE CERVIX
     Dosage: ON DAY 1 AND 8 FOR 2 CYCLES OF CHEMOTHERAPY (3 WEEKS WERE ONE CYCLE)
     Route: 065
  2. BEVACIZUMAB. [Suspect]
     Active Substance: BEVACIZUMAB
     Indication: ADENOCARCINOMA OF THE CERVIX
     Dosage: 1 DAY BEFORE CHEMOTHERAPY BY INTRAVENOUS INJECTION?EACH PATIENT WAS TREATED WITH BEVACIZUMAB PLUS CH
     Route: 042

REACTIONS (6)
  - Intentional product use issue [Unknown]
  - Gastrointestinal disorder [Unknown]
  - Bone marrow failure [Unknown]
  - Off label use [Unknown]
  - Hypertension [Unknown]
  - Proteinuria [Unknown]
